FAERS Safety Report 19303408 (Version 7)
Quarter: 2024Q2

REPORT INFORMATION
  Report Type: Spontaneous
  Country: CZ (occurrence: CZ)
  Receive Date: 20210525
  Receipt Date: 20240610
  Transmission Date: 20240715
  Serious: Yes (Life-Threatening, Hospitalization, Other)
  Sender: FDA-Public Use
  Company Number: CZ-PFIZER INC-2020507604

PATIENT
  Age: 33 Year
  Sex: Female

DRUGS (21)
  1. IBUPROFEN [Suspect]
     Active Substance: IBUPROFEN
     Indication: Migraine
     Dosage: UNK (HIGH DOSES)
     Route: 065
  2. IBUPROFEN [Suspect]
     Active Substance: IBUPROFEN
     Indication: Back pain
  3. IBUPROFEN [Suspect]
     Active Substance: IBUPROFEN
     Indication: Headache
  4. ADVIL [Suspect]
     Active Substance: IBUPROFEN\IBUPROFEN SODIUM
     Indication: Product used for unknown indication
     Dosage: UNK
     Route: 065
  5. IBUPROFEN\PSEUDOEPHEDRINE HYDROCHLORIDE [Suspect]
     Active Substance: IBUPROFEN\PSEUDOEPHEDRINE HYDROCHLORIDE
     Indication: Back pain
     Dosage: UNK
     Route: 065
  6. IBUPROFEN\PSEUDOEPHEDRINE HYDROCHLORIDE [Suspect]
     Active Substance: IBUPROFEN\PSEUDOEPHEDRINE HYDROCHLORIDE
     Indication: Headache
  7. IBUPROFEN\PSEUDOEPHEDRINE HYDROCHLORIDE [Suspect]
     Active Substance: IBUPROFEN\PSEUDOEPHEDRINE HYDROCHLORIDE
     Indication: Migraine
  8. PSEUDOEPHEDRINE [Suspect]
     Active Substance: PSEUDOEPHEDRINE
     Indication: Headache
     Dosage: UNK (HIGH DOSES)
     Route: 065
  9. PSEUDOEPHEDRINE [Suspect]
     Active Substance: PSEUDOEPHEDRINE
     Indication: Back pain
  10. ALPRAZOLAM [Concomitant]
     Active Substance: ALPRAZOLAM
     Indication: Migraine
     Dosage: UNK, QD, PM (AT NIGHT)
     Route: 065
  11. ALPRAZOLAM [Concomitant]
     Active Substance: ALPRAZOLAM
     Dosage: AT NIGHT
     Route: 065
  12. ALPRAZOLAM [Concomitant]
     Active Substance: ALPRAZOLAM
     Dosage: AT NIGHT
     Route: 065
  13. ALPRAZOLAM [Concomitant]
     Active Substance: ALPRAZOLAM
     Dosage: UNK, HS, AT NIGHT
     Route: 065
  14. ALPRAZOLAM [Concomitant]
     Active Substance: ALPRAZOLAM
     Dosage: AT NIGHT
     Route: 065
  15. ALPRAZOLAM [Concomitant]
     Active Substance: ALPRAZOLAM
     Dosage: AT NIGHT
     Route: 065
  16. VALERIANA OFFICINALE [Concomitant]
     Indication: Migraine
     Dosage: UNK, QD, PM (AT NIGHT)
     Route: 048
  17. VALERIANA OFFICINALE [Concomitant]
     Dosage: DROPS, AT NIGHT
     Route: 065
  18. VALERIANA OFFICINALE [Concomitant]
     Dosage: DROPS, AT NIGHT
     Route: 065
  19. VALERIANA OFFICINALE [Concomitant]
     Dosage: DROPS, AT NIGHT
     Route: 065
  20. VALERIANA OFFICINALE [Concomitant]
     Dosage: DROPS, AT NIGHT
     Route: 065
  21. VALERIANA OFFICINALE [Concomitant]
     Dosage: DROPS, UNK, HS
     Route: 065

REACTIONS (13)
  - Renal tubular necrosis [Recovered/Resolved]
  - Renal failure [Recovered/Resolved]
  - Nephropathy toxic [Recovered/Resolved]
  - Diarrhoea [Recovered/Resolved]
  - Hypervolaemia [Recovered/Resolved]
  - Oedematous kidney [Recovered/Resolved]
  - Dyspnoea [Recovered/Resolved]
  - Vomiting [Recovered/Resolved]
  - Anuria [Recovered/Resolved]
  - Hyponatraemia [Unknown]
  - Hyperkalaemia [Unknown]
  - Hypochloraemia [Unknown]
  - Overdose [Unknown]
